FAERS Safety Report 7333038-5 (Version None)
Quarter: 2011Q1

REPORT INFORMATION
  Report Type: 
  Country: None (occurrence: None)
  Receive Date: 20110304
  Receipt Date: 20110222
  Transmission Date: 20110831
  Serious: No
  Sender: FDA-Public Use
  Company Number: US-PFIZER INC-2011038786

PATIENT
  Sex: Female
  Weight: 143 kg

DRUGS (2)
  1. TESTOSTERONE [Concomitant]
     Indication: LIBIDO DECREASED
     Dosage: 2.5 MG, 1X/DAY
  2. PREMARIN [Suspect]
     Indication: VULVOVAGINAL DRYNESS
     Dosage: 0.625 MG, 1X/DAY
     Route: 067
     Dates: start: 20110218, end: 20110218

REACTIONS (2)
  - CHEST PAIN [None]
  - PAIN IN EXTREMITY [None]
